FAERS Safety Report 5442903-5 (Version None)
Quarter: 2007Q3

REPORT INFORMATION
  Report Type: 
  Country: None (occurrence: None)
  Receive Date: 20070830
  Receipt Date: 20070814
  Transmission Date: 20080115
  Serious: Yes (Hospitalization)
  Sender: FDA-Public Use
  Company Number: 2007BI009490

PATIENT
  Sex: Female
  Weight: 60 kg

DRUGS (12)
  1. AVONEX [Suspect]
     Indication: MULTIPLE SCLEROSIS
     Dosage: 30 UG;QW;IM
     Route: 030
     Dates: start: 20041001, end: 20061201
  2. AVONEX [Suspect]
     Indication: MULTIPLE SCLEROSIS
     Dosage: 30 UG;QW;IM
     Route: 030
     Dates: start: 20070401, end: 20070423
  3. VENLAFAXINE HCL [Concomitant]
  4. OCP [Concomitant]
  5. MODAFINIL [Concomitant]
  6. PREGABALIN [Concomitant]
  7. ALENDRONATE SODIUM [Concomitant]
  8. BACLOFEN [Concomitant]
  9. FLUOXETINE [Concomitant]
  10. PROPIVERINE [Concomitant]
  11. DOMPERIDONE [Concomitant]
  12. COLECALCIFEROL [Concomitant]

REACTIONS (1)
  - DEEP VEIN THROMBOSIS [None]
